FAERS Safety Report 21105006 (Version 1)
Quarter: 2022Q3

REPORT INFORMATION
  Report Type: Report from Study
  Country: US (occurrence: US)
  Receive Date: 20220720
  Receipt Date: 20220720
  Transmission Date: 20221027
  Serious: Yes (Other)
  Sender: FDA-Public Use
  Company Number: US-TAKEDA-US202032412

PATIENT
  Sex: Male
  Weight: 78 kg

DRUGS (23)
  1. HUMAN IMMUNOGLOBULIN G [Suspect]
     Active Substance: HUMAN IMMUNOGLOBULIN G
     Indication: Hypogammaglobulinaemia
     Dosage: 16 GRAM, Q2WEEKS
     Route: 058
     Dates: start: 20181114
  2. METHOTREXATE [Suspect]
     Active Substance: METHOTREXATE
     Indication: Product used for unknown indication
     Dosage: UNK
     Route: 065
  3. ACETAMINOPHEN [Concomitant]
     Active Substance: ACETAMINOPHEN
  4. DIPHENHYDRAMINE [Concomitant]
     Active Substance: DIPHENHYDRAMINE
  5. EPINEPHRINE [Concomitant]
     Active Substance: EPINEPHRINE
  6. LIDOCAINE [Concomitant]
     Active Substance: LIDOCAINE
  7. SINGULAIR [Concomitant]
     Active Substance: MONTELUKAST SODIUM
  8. XANAX [Concomitant]
     Active Substance: ALPRAZOLAM
  9. MONTELUKAST SODIUM [Concomitant]
     Active Substance: MONTELUKAST SODIUM
  10. TRAMADOL [Concomitant]
     Active Substance: TRAMADOL
  11. NEXIUM I.V. [Concomitant]
     Active Substance: ESOMEPRAZOLE SODIUM
  12. EPIPEN [Concomitant]
     Active Substance: EPINEPHRINE
  13. CYPROHEPTADINE [Concomitant]
     Active Substance: CYPROHEPTADINE
  14. PAROXETINE [Concomitant]
     Active Substance: PAROXETINE
  15. BUTALBITAL, ACETAMINOPHEN, AND CAFFEINE [Concomitant]
     Active Substance: ACETAMINOPHEN\BUTALBITAL\CAFFEINE
  16. VITAMINS [Concomitant]
     Active Substance: VITAMINS
  17. PROMETHAZINE [Concomitant]
     Active Substance: PROMETHAZINE HYDROCHLORIDE
  18. ZANAFLEX [Concomitant]
     Active Substance: TIZANIDINE HYDROCHLORIDE
  19. LORATADINE [Concomitant]
     Active Substance: LORATADINE
  20. TIZANIDINE [Concomitant]
     Active Substance: TIZANIDINE
  21. HIZENTRA [Concomitant]
     Active Substance: HUMAN IMMUNOGLOBULIN G
  22. CARAFATE [Concomitant]
     Active Substance: SUCRALFATE
  23. PIROXICAM [Concomitant]
     Active Substance: PIROXICAM

REACTIONS (13)
  - Polymyositis [Unknown]
  - Blood immunoglobulin M decreased [Unknown]
  - Herpes zoster [Unknown]
  - Illness [Unknown]
  - Blood calcium increased [Unknown]
  - Noninfective gingivitis [Unknown]
  - Eye inflammation [Unknown]
  - Blood immunoglobulin G decreased [Unknown]
  - Bone marrow disorder [Unknown]
  - Blood iron decreased [Unknown]
  - Pain in extremity [Unknown]
  - Gout [Unknown]
  - Malaise [Unknown]
